FAERS Safety Report 19166935 (Version 4)
Quarter: 2022Q4

REPORT INFORMATION
  Report Type: Spontaneous
  Country: JP (occurrence: JP)
  Receive Date: 20210421
  Receipt Date: 20221104
  Transmission Date: 20230112
  Serious: Yes (Hospitalization)
  Sender: FDA-Public Use
  Company Number: JP-JNJFOC-20210438136

PATIENT
  Age: 60 Year
  Sex: Male

DRUGS (22)
  1. INTELENCE [Suspect]
     Active Substance: ETRAVIRINE
     Indication: HIV infection
     Route: 048
     Dates: start: 20170307, end: 20201210
  2. TIVICAY [Concomitant]
     Active Substance: DOLUTEGRAVIR SODIUM
     Indication: HIV infection
     Route: 048
     Dates: start: 20201211
  3. EMTRICITABINE\TENOFOVIR ALAFENAMIDE FUMARATE [Concomitant]
     Active Substance: EMTRICITABINE\TENOFOVIR ALAFENAMIDE FUMARATE
     Indication: HIV infection
     Route: 048
     Dates: start: 20170307, end: 20201210
  4. PIFELTRO [Concomitant]
     Active Substance: DORAVIRINE
     Indication: HIV infection
     Route: 048
     Dates: start: 20201211
  5. MARAVIROC [Concomitant]
     Active Substance: MARAVIROC
     Indication: HIV infection
     Route: 048
     Dates: start: 20170307, end: 20201210
  6. TRICHLORMETHIAZIDE [Concomitant]
     Active Substance: TRICHLORMETHIAZIDE
     Dosage: DOSE UNKNOWN
     Route: 048
     Dates: start: 20160401
  7. ADALAT CC [Concomitant]
     Active Substance: NIFEDIPINE
     Dosage: DOSE UNKNOWN
     Route: 048
     Dates: start: 20160401
  8. AZILSARTAN KAMEDOXOMIL [Concomitant]
     Active Substance: AZILSARTAN KAMEDOXOMIL
     Dosage: DOSE UNKNOWN
     Route: 048
     Dates: start: 20160401
  9. CARDENALIN [Concomitant]
     Active Substance: DOXAZOSIN MESYLATE
     Dosage: DOSE UNKNOWN
     Route: 048
     Dates: start: 20160401
  10. POLARAMINE [Concomitant]
     Active Substance: DEXCHLORPHENIRAMINE MALEATE
     Indication: Pruritus
     Dosage: DOSE UNKNOWN
     Route: 065
     Dates: start: 20160401
  11. ADVATE [Concomitant]
     Active Substance: ANTIHEMOPHILIC FACTOR, HUMAN RECOMBINANT
     Dosage: DOSE UNKNOWN
     Route: 065
     Dates: start: 20160510
  12. ATORVASTATIN [Concomitant]
     Active Substance: ATORVASTATIN
     Indication: Dyslipidaemia
     Dosage: DOSE UNKNOWN
     Route: 048
     Dates: start: 20161004
  13. VITAMEDIN [BENFOTIAMINE;CYANOCOBALAMIN;PYRIDOXINE HYDROCHLORIDE] [Concomitant]
     Indication: Prophylaxis
     Dosage: DOSE UNKNOWN
     Route: 065
     Dates: start: 20170110
  14. COIX SEED EXTRACT [COIX SPP. SEED] [Concomitant]
     Dosage: DOSE UNKNOWN
     Route: 048
     Dates: start: 20180508
  15. ALLEGRA [Concomitant]
     Active Substance: FEXOFENADINE HYDROCHLORIDE
     Dosage: DOSE UNKNOWN
     Route: 048
     Dates: start: 20180306
  16. CELECOXIB [Concomitant]
     Active Substance: CELECOXIB
     Dosage: DOSE UNKNOWN
     Route: 048
     Dates: start: 20170401
  17. OMEPRAZOLE [Concomitant]
     Active Substance: OMEPRAZOLE
     Dosage: DOSE UNKNOWN
     Route: 065
     Dates: start: 20160401, end: 20170604
  18. ISOSORBIDE DINITRATE [Concomitant]
     Active Substance: ISOSORBIDE DINITRATE
     Dosage: DOSE UNKNOWN
     Route: 062
     Dates: start: 20160401, end: 20170605
  19. VITAMINS NOS [Concomitant]
     Active Substance: VITAMINS
     Dosage: DOSE UNKNOWN
     Route: 048
     Dates: start: 20160401, end: 20170409
  20. TORSEMIDE [Concomitant]
     Active Substance: TORSEMIDE
     Dosage: DOSE UNKNOWN
     Route: 048
     Dates: start: 20160401, end: 20190312
  21. CISPLATIN [Concomitant]
     Active Substance: CISPLATIN
     Indication: Nasal sinus cancer
     Dosage: DOSE UNKNOWN
     Route: 042
     Dates: start: 20201221
  22. OPDIVO [Concomitant]
     Active Substance: NIVOLUMAB
     Indication: Lip and/or oral cavity cancer
     Dosage: DOSE UNKNOWN
     Route: 041
     Dates: start: 20210315

REACTIONS (1)
  - Lip and/or oral cavity cancer [Not Recovered/Not Resolved]

NARRATIVE: CASE EVENT DATE: 20200801
